FAERS Safety Report 24262614 (Version 1)
Quarter: 2024Q3

REPORT INFORMATION
  Report Type: Spontaneous
  Country: US (occurrence: US)
  Receive Date: 20240829
  Receipt Date: 20240829
  Transmission Date: 20241016
  Serious: Yes (Other)
  Sender: AMNEAL
  Company Number: US-AMNEAL PHARMACEUTICALS-2023-AMRX-04412

PATIENT
  Age: 38 Year
  Sex: Female
  Weight: 64.3 kg

DRUGS (14)
  1. MYCOPHENOLATE MOFETIL [Suspect]
     Active Substance: MYCOPHENOLATE MOFETIL
     Indication: Renal transplant
     Dosage: 500 MILLIGRAM, BID
     Route: 048
     Dates: start: 20170924, end: 20230918
  2. MYCOPHENOLATE MOFETIL [Suspect]
     Active Substance: MYCOPHENOLATE MOFETIL
     Indication: Immunosuppression
  3. AMLODIPINE [Concomitant]
     Active Substance: AMLODIPINE BESYLATE
     Indication: Hypertension
     Dosage: 10 MILLIGRAM, DAILY
     Route: 065
     Dates: start: 20230222
  4. BELATACEPT [Concomitant]
     Active Substance: BELATACEPT
     Indication: Renal transplant
     Dosage: 5 MILLIGRAM/KILOGRAM (EVERY 4 WEEK)
     Route: 042
     Dates: start: 20200806
  5. BELATACEPT [Concomitant]
     Active Substance: BELATACEPT
     Indication: Immunosuppression
  6. COREG [Concomitant]
     Active Substance: CARVEDILOL
     Indication: Hypertension
     Dosage: 25 MILLIGRAM, BID
     Route: 065
     Dates: start: 20230612
  7. FLEXERIL [Concomitant]
     Active Substance: CYCLOBENZAPRINE HYDROCHLORIDE
     Indication: Muscle relaxant therapy
     Dosage: 10 MILLIGRAM, TID
     Route: 065
  8. OMEPRAZOLE [Concomitant]
     Active Substance: OMEPRAZOLE
     Indication: Gastrooesophageal reflux disease
     Dosage: 40 MILLIGRAM, DAILY
     Route: 065
  9. PREDNISONE [Concomitant]
     Active Substance: PREDNISONE
     Indication: Renal transplant
     Dosage: 5 MILLIGRAM, DAILY
     Route: 065
     Dates: start: 20170924
  10. PREDNISONE [Concomitant]
     Active Substance: PREDNISONE
     Indication: Immunosuppression
  11. PEGLOTICASE [Concomitant]
     Active Substance: PEGLOTICASE
     Indication: Gout
     Dosage: 8 MILLIGRAM, EVERY 2WK
     Route: 065
     Dates: start: 20220928, end: 20231009
  12. ENVARSUS XR [Concomitant]
     Active Substance: TACROLIMUS
     Indication: Renal transplant
     Dosage: 5 MILLIGRAM, DAILY
     Route: 065
     Dates: start: 20170924
  13. ENVARSUS XR [Concomitant]
     Active Substance: TACROLIMUS
     Indication: Immunosuppression
  14. TRAZODONE [Concomitant]
     Active Substance: TRAZODONE HYDROCHLORIDE
     Indication: Somnolence
     Dosage: 50 MILLIGRAM EVERY NIGHT
     Route: 065

REACTIONS (2)
  - Abortion spontaneous [Unknown]
  - Exposure during pregnancy [Unknown]

NARRATIVE: CASE EVENT DATE: 20231009
